FAERS Safety Report 9552679 (Version 1)
Quarter: 2013Q2

REPORT INFORMATION
  Report Type: Spontaneous
  Country: US (occurrence: None)
  Receive Date: 20130507
  Receipt Date: 20130507
  Transmission Date: 20140414
  Serious: Yes (Disabling, Other)
  Sender: FDA-Public Use
  Company Number: PHEH2012US016086

PATIENT
  Age: 55 Year
  Sex: Male

DRUGS (5)
  1. TASIGNA [Suspect]
     Indication: CHRONIC MYELOID LEUKAEMIA
     Route: 048
     Dates: start: 201007, end: 20120710
  2. ASA (ACETYLSALICYLIC ACID) [Concomitant]
  3. FISH OIL (FISH OIL) [Concomitant]
  4. PLAVIX (CLOPIDOGREL SULFATE) [Concomitant]
  5. FENOFIBRATE (FENOFIBRATE) (FENOFIBRATE) [Concomitant]

REACTIONS (5)
  - Peripheral arterial occlusive disease [None]
  - Intermittent claudication [None]
  - Heart rate decreased [None]
  - Pain [None]
  - Muscle spasms [None]
